FAERS Safety Report 9240414 (Version 2)
Quarter: 2013Q2

REPORT INFORMATION
  Report Type: Report from Study
  Country: BR (occurrence: BR)
  Receive Date: 20130418
  Receipt Date: 20130618
  Transmission Date: 20140414
  Serious: Yes (Hospitalization)
  Sender: FDA-Public Use
  Company Number: BR-ABBOTT-13P-020-1060357-00

PATIENT
  Age: 39 Year
  Sex: Female
  Weight: 60 kg

DRUGS (3)
  1. HUMIRA [Suspect]
     Indication: PSORIASIS
     Route: 058
     Dates: start: 20120713, end: 201303
  2. DORFLEX [Concomitant]
     Indication: PAIN
     Route: 048
     Dates: start: 2011
  3. DIPYRONE [Concomitant]
     Indication: HEADACHE
     Route: 048
     Dates: start: 2003

REACTIONS (9)
  - Oedema mouth [Not Recovered/Not Resolved]
  - Aphasia [Unknown]
  - Urticaria [Recovering/Resolving]
  - Psoriasis [Unknown]
  - Chest pain [Unknown]
  - Pharyngeal oedema [Recovering/Resolving]
  - Oedema mouth [Recovering/Resolving]
  - Urticaria [Recovering/Resolving]
  - Eye swelling [Not Recovered/Not Resolved]
